FAERS Safety Report 9339981 (Version 2)
Quarter: 2013Q2

REPORT INFORMATION
  Report Type: Report from Study
  Country: DE (occurrence: DE)
  Receive Date: 20130610
  Receipt Date: 20130612
  Transmission Date: 20140414
  Serious: Yes (Life-Threatening)
  Sender: FDA-Public Use
  Company Number: DE-PFIZER INC-2013173863

PATIENT
  Age: 62 Year
  Sex: Male
  Weight: 91 kg

DRUGS (4)
  1. CISPLATIN [Suspect]
     Indication: MANTLE CELL LYMPHOMA
     Dosage: 100 MG, DAY 1, CYCLIC
     Route: 042
     Dates: start: 20130131
  2. RATIOGRASTIM [Suspect]
     Indication: NEUTROPENIA
     Dosage: 30 MU ON DAY 5,6,7,8,9 (CYCLIC)
     Route: 058
     Dates: start: 20130204, end: 20130208
  3. CYTOSINE ARABINOSIDE [Suspect]
     Indication: MANTLE CELL LYMPHOMA
     Dosage: 2X 4G, DAY 2, CYCLIC
     Dates: start: 20130201
  4. DEXAMETHASONE [Concomitant]
     Indication: MANTLE CELL LYMPHOMA
     Dosage: 40 MG, DAY 1-4, CYCLIC
     Dates: start: 20130131

REACTIONS (1)
  - Pancytopenia [Not Recovered/Not Resolved]
